FAERS Safety Report 21131255 (Version 1)
Quarter: 2022Q3

REPORT INFORMATION
  Report Type: Spontaneous
  Country: US (occurrence: US)
  Receive Date: 20220726
  Receipt Date: 20220726
  Transmission Date: 20221026
  Serious: Yes (Other)
  Sender: FDA-Public Use
  Company Number: US-PFIZER INC-PV202200023423

PATIENT
  Age: 39 Year
  Sex: Female

DRUGS (4)
  1. TIGECYCLINE [Suspect]
     Active Substance: TIGECYCLINE
     Indication: Cellulitis
     Dosage: UNK
  2. BEDAQUILINE [Concomitant]
     Active Substance: BEDAQUILINE
     Indication: Cellulitis
     Dosage: UNK
  3. BEDAQUILINE [Concomitant]
     Active Substance: BEDAQUILINE
     Indication: Mycobacterial infection
  4. CEFOXITIN [Concomitant]
     Active Substance: CEFOXITIN SODIUM
     Indication: Cellulitis
     Dosage: UNK

REACTIONS (1)
  - Abdominal discomfort [Unknown]
